FAERS Safety Report 23044847 (Version 3)
Quarter: 2023Q4

REPORT INFORMATION
  Report Type: Spontaneous
  Country: US (occurrence: US)
  Receive Date: 20231009
  Receipt Date: 20231220
  Transmission Date: 20240110
  Serious: No
  Sender: FDA-Public Use
  Company Number: US-PFIZER INC-202300316368

PATIENT
  Age: 64 Year
  Sex: Female

DRUGS (8)
  1. INLYTA [Suspect]
     Active Substance: AXITINIB
     Indication: Metastatic renal cell carcinoma
     Dosage: 5 MG, 2X/DAY (EVERY 12 HOURS)
     Route: 048
     Dates: start: 20230817
  2. INLYTA [Suspect]
     Active Substance: AXITINIB
     Indication: Metastases to adrenals
     Dosage: TAKE 2 TABLETS OF 1 MG WITH 1 TABLET OF 5 MG EVERY 12 HOURS
     Route: 048
     Dates: start: 20230817
  3. INLYTA [Suspect]
     Active Substance: AXITINIB
     Dosage: TAKE 2 TABLETS OF 1 MG WITH 1 TABLET OF 5 MG EVERY 12 HOURS
     Route: 048
     Dates: start: 20230817
  4. CHOLECALCIFEROL [Concomitant]
     Active Substance: CHOLECALCIFEROL
     Dosage: UNK
  5. XARELTO [Concomitant]
     Active Substance: RIVAROXABAN
     Dosage: UNK
  6. ALBUTEROL [Concomitant]
     Active Substance: ALBUTEROL
     Dosage: UNK
  7. KEYTRUDA [Concomitant]
     Active Substance: PEMBROLIZUMAB
     Dosage: UNK
  8. VITAMIN B1 [Concomitant]
     Active Substance: THIAMINE HYDROCHLORIDE
     Dosage: UNK

REACTIONS (4)
  - Dizziness [Recovering/Resolving]
  - Orthostatic hypotension [Recovering/Resolving]
  - Hepatic enzyme increased [Recovering/Resolving]
  - Rash [Recovering/Resolving]

NARRATIVE: CASE EVENT DATE: 20230101
